FAERS Safety Report 10412215 (Version 1)
Quarter: 2014Q2

REPORT INFORMATION
  Report Type: Spontaneous
  Country: US (occurrence: None)
  Receive Date: 20140604
  Receipt Date: 20140604
  Transmission Date: 20141212
  Serious: Yes (Hospitalization)
  Sender: FDA-Public Use
  Company Number: 20100930CINRY1631

PATIENT
  Age: 53 Year
  Sex: Female

DRUGS (8)
  1. CINRYZE [Suspect]
     Indication: HEREDITARY ANGIOEDEMA
     Dates: start: 20100908
  2. CINRYZE [Suspect]
     Indication: PROPHYLAXIS
     Dates: start: 20100908
  3. ANTIBIOTICS (ANTIBIOTICS) [Concomitant]
  4. VICODIN (VICODIN) [Concomitant]
  5. LEVOXYL (LEVOTHYROXINE SODIUM) [Concomitant]
  6. EPIPEN (EPINEPHRINE) [Concomitant]
  7. INHALER [Concomitant]
  8. STEROIDS [Concomitant]

REACTIONS (3)
  - Hereditary angioedema [None]
  - Wrong technique in drug usage process [None]
  - Inappropriate schedule of drug administration [None]
